FAERS Safety Report 22323724 (Version 2)
Quarter: 2023Q2

REPORT INFORMATION
  Report Type: Spontaneous
  Country: GR (occurrence: GR)
  Receive Date: 20230516
  Receipt Date: 20230522
  Transmission Date: 20230722
  Serious: Yes (Life-Threatening, Hospitalization, Other)
  Sender: FDA-Public Use
  Company Number: GR-MLMSERVICE-20230505-4272297-1

PATIENT
  Age: 42 Year
  Sex: Male

DRUGS (6)
  1. ADALIMUMAB [Suspect]
     Active Substance: ADALIMUMAB
     Indication: Crohn^s disease
     Dosage: UNK
  2. ADALIMUMAB [Suspect]
     Active Substance: ADALIMUMAB
     Dosage: 40 MG EVERY OTHER WEEK
  3. INFLIXIMAB [Suspect]
     Active Substance: INFLIXIMAB
     Indication: Crohn^s disease
     Dosage: 5 MG/KG EVERY 8 WEEKS
  4. AZATHIOPRINE [Suspect]
     Active Substance: AZATHIOPRINE
     Indication: Crohn^s disease
     Dosage: 100 MG, 1X/DAY
  5. USTEKINUMAB [Suspect]
     Active Substance: USTEKINUMAB
     Indication: Crohn^s disease
     Dosage: ACCORDING TO THE PATIENTS WEIGHT.
     Route: 042
     Dates: start: 201801, end: 2018
  6. USTEKINUMAB [Suspect]
     Active Substance: USTEKINUMAB
     Dosage: EVERY EIGHT WEEKS THEREAFTER
     Route: 058
     Dates: start: 2018

REACTIONS (13)
  - Metastatic malignant melanoma [Recovering/Resolving]
  - Metastases to central nervous system [Not Recovered/Not Resolved]
  - Metastases to lung [Recovering/Resolving]
  - Metastases to liver [Recovering/Resolving]
  - Metastases to heart [Recovering/Resolving]
  - Metastases to adrenals [Recovering/Resolving]
  - Metastases to kidney [Recovering/Resolving]
  - Metastases to abdominal wall [Recovering/Resolving]
  - Metastases to bone [Recovering/Resolving]
  - Acute respiratory failure [Recovered/Resolved]
  - Acute kidney injury [Recovered/Resolved]
  - Polyneuropathy [Unknown]
  - Drug hypersensitivity [Unknown]

NARRATIVE: CASE EVENT DATE: 20210101
